FAERS Safety Report 9660395 (Version 2)
Quarter: 2013Q4

REPORT INFORMATION
  Report Type: Spontaneous
  Country: US (occurrence: US)
  Receive Date: 20131031
  Receipt Date: 20131031
  Transmission Date: 20140711
  Serious: Yes (Other)
  Sender: FDA-Public Use
  Company Number: US-NAPPMUNDI-USA-2006-0025318

PATIENT
  Age: 56 Year
  Sex: Male

DRUGS (4)
  1. OXYCODONE HYDROCHLORIDE (SIMILAR TO NDA 20-553) [Suspect]
     Indication: PAIN
     Dosage: 10 MG, DAILY
  2. OXYCODONE HYDROCHLORIDE (SIMILAR TO NDA 20-553) [Suspect]
     Dosage: 40 MG, DAILY
  3. OXYCODONE HYDROCHLORIDE (SIMILAR TO NDA 20-553) [Suspect]
     Dosage: 20 MG, BID
  4. LYRICA [Concomitant]
     Indication: PAIN
     Dosage: 50 MG, TID

REACTIONS (9)
  - Drug dependence [Unknown]
  - Nervous system disorder [Unknown]
  - Fear [Unknown]
  - Pain [Unknown]
  - Drug ineffective [Unknown]
  - Mood altered [Unknown]
  - Depressed mood [Unknown]
  - Drug effect decreased [Unknown]
  - Euphoric mood [Unknown]
